FAERS Safety Report 5066065-1 (Version None)
Quarter: 2006Q3

REPORT INFORMATION
  Report Type: 
  Country: None (occurrence: None)
  Receive Date: 20060731
  Receipt Date: 20050408
  Transmission Date: 20061208
  Serious: Yes (Other)
  Sender: FDA-Public Use
  Company Number: CH-MERCK-0504CHE00014

PATIENT
  Age: 41 Year
  Sex: Female

DRUGS (1)
  1. NOROXIN [Suspect]
     Indication: URINARY TRACT INFECTION
     Route: 048
     Dates: start: 20050310, end: 20050315

REACTIONS (1)
  - DRUG EXPOSURE DURING PREGNANCY [None]
